FAERS Safety Report 6706186-8 (Version None)
Quarter: 2010Q2

REPORT INFORMATION
  Report Type: 
  Country: None (occurrence: None)
  Receive Date: 20100429
  Receipt Date: 20100426
  Transmission Date: 20101027
  Serious: Yes (Hospitalization, Other)
  Sender: FDA-Public Use
  Company Number: ALL1-2010-00826

PATIENT
  Age: 68 Year
  Sex: Male
  Weight: 115.2 kg

DRUGS (5)
  1. FOSRENOL [Suspect]
     Indication: HYPERPHOSPHATAEMIA
     Dosage: 1500 MG WITH MEALS, ORAL
     Route: 048
     Dates: start: 20090601
  2. NEXIUM [Concomitant]
  3. UNSPECIFIED PROBIOTIC [Concomitant]
  4. PROVEXCV (BIOFLAVONOIDS, BROMELAINS, GINKGO BILOBA, PAPAIN, VACCINIUM [Concomitant]
  5. PHYTOMEGA (ASCORBIC ACID, BROMELAINS, FATS NOS, FISH OIL, LECITHIN, SI [Concomitant]

REACTIONS (4)
  - BLOOD PHOSPHORUS INCREASED [None]
  - CLOSTRIDIAL INFECTION [None]
  - DEHYDRATION [None]
  - SCROTAL INFECTION [None]
